FAERS Safety Report 6793620-0 (Version None)
Quarter: 2010Q2

REPORT INFORMATION
  Report Type: 
  Country: None (occurrence: None)
  Receive Date: 20100624
  Receipt Date: 20090316
  Transmission Date: 20101027
  Serious: No
  Sender: FDA-Public Use
  Company Number: US-PFIZER INC-2008155019

PATIENT
  Sex: Female
  Weight: 52.2 kg

DRUGS (1)
  1. RELPAX [Suspect]
     Indication: MIGRAINE
     Dates: start: 20081215, end: 20081215

REACTIONS (4)
  - ABDOMINAL PAIN UPPER [None]
  - BURNING SENSATION [None]
  - HEADACHE [None]
  - PAIN IN EXTREMITY [None]
